FAERS Safety Report 15839404 (Version 1)
Quarter: 2019Q1

REPORT INFORMATION
  Report Type: Spontaneous
  Country: DE (occurrence: DE)
  Receive Date: 20190117
  Receipt Date: 20190117
  Transmission Date: 20190417
  Serious: Yes (Other)
  Sender: FDA-Public Use
  Company Number: DE-MYLANLABS-2019M1003781

PATIENT
  Age: 59 Year
  Sex: Female

DRUGS (4)
  1. RIBOCICLIB. [Concomitant]
     Active Substance: RIBOCICLIB
     Indication: PRODUCT USED FOR UNKNOWN INDICATION
     Dosage: 600 MILLIGRAM, QD (600 MG, 1-0-0)
     Route: 065
  2. ZOLEDRONIC ACID [Suspect]
     Active Substance: ZOLEDRONIC ACID
     Indication: PRODUCT USED FOR UNKNOWN INDICATION
     Dosage: 4 MILLIGRAM ( Q6M)
     Route: 065
  3. ZOLEDRONIC ACID [Suspect]
     Active Substance: ZOLEDRONIC ACID
     Dosage: 4 MILLIGRAM, MONTHLY
     Route: 065
     Dates: start: 201612
  4. LETROZOLE. [Concomitant]
     Active Substance: LETROZOLE
     Indication: PRODUCT USED FOR UNKNOWN INDICATION
     Dosage: 2.5 MILLIGRAM, QD (2.5 MG, 1-0-0)
     Route: 065

REACTIONS (6)
  - Metastases to bone [Unknown]
  - Breast cancer metastatic [Unknown]
  - Back pain [Unknown]
  - Metastases to lymph nodes [Unknown]
  - Neutropenia [Unknown]
  - Metastases to lung [Unknown]

NARRATIVE: CASE EVENT DATE: 201611
